FAERS Safety Report 7172702-8 (Version None)
Quarter: 2010Q4

REPORT INFORMATION
  Report Type: 
  Country: None (occurrence: None)
  Receive Date: 20101217
  Receipt Date: 20100315
  Transmission Date: 20110411
  Serious: Yes (Other)
  Sender: FDA-Public Use
  Company Number: US-AMGEN-QUU392034

PATIENT

DRUGS (4)
  1. ENBREL [Suspect]
     Indication: PSORIASIS
     Dosage: 50 MG, 2 TIMES/WK
     Route: 058
     Dates: start: 20081116, end: 20090901
  2. LEVOTHYROXINE SODIUM [Concomitant]
     Dosage: UNK UNK, UNK
  3. CYCLOSPORINE [Concomitant]
     Dosage: UNK UNK, UNK
  4. PREDNISONE [Concomitant]
     Dosage: UNK UNK, UNK

REACTIONS (1)
  - BREAST CANCER [None]
